FAERS Safety Report 7282402-1 (Version None)
Quarter: 2011Q1

REPORT INFORMATION
  Report Type: 
  Country: None (occurrence: None)
  Receive Date: 20110209
  Receipt Date: 20110201
  Transmission Date: 20110831
  Serious: Yes (Hospitalization)
  Sender: FDA-Public Use
  Company Number: US-ASTELLAS-2011US000478

PATIENT

DRUGS (10)
  1. GEMFIBROZIL [Concomitant]
     Indication: TRANSPLANT REJECTION
     Dosage: 600 MG, BID
     Route: 048
     Dates: start: 20100101
  2. NOVOLIN 70/30 [Concomitant]
     Indication: PRODUCT USED FOR UNKNOWN INDICATION
     Dosage: 100 U, UID/QD
     Route: 042
     Dates: start: 20100101
  3. PROGRAF [Suspect]
     Indication: RENAL TRANSPLANT
     Dosage: 4 MG, BID
     Route: 048
     Dates: start: 20091001
  4. FAMOTIDINE [Concomitant]
     Indication: TRANSPLANT REJECTION
     Dosage: 20 MG, BID
     Route: 048
     Dates: start: 20100101
  5. VALCYTE [Concomitant]
     Indication: TRANSPLANT REJECTION
     Dosage: 450 MG, BID
     Route: 048
     Dates: start: 20100101
  6. ATENOLOL [Concomitant]
     Indication: TRANSPLANT REJECTION
     Dosage: 50 MG, BID
     Route: 048
     Dates: start: 20100101
  7. MINOXIDIL [Concomitant]
     Indication: TRANSPLANT REJECTION
     Dosage: 10 MG, BID
     Route: 048
     Dates: start: 20100101
  8. AMLODIPINE BESYLATE [Concomitant]
     Indication: TRANSPLANT REJECTION
     Dosage: 10 MG, UID/QD
     Route: 048
     Dates: start: 20100101
  9. GLIPIZIDE [Concomitant]
     Indication: TRANSPLANT REJECTION
     Dosage: 10 MG, BID
     Route: 048
     Dates: start: 20100101
  10. PREDNISONE [Concomitant]
     Indication: RENAL TRANSPLANT
     Dosage: 7.5 MG, UID/QD
     Route: 048
     Dates: start: 20091001

REACTIONS (1)
  - BLOOD COUNT ABNORMAL [None]
